FAERS Safety Report 4864863-8 (Version None)
Quarter: 2005Q4

REPORT INFORMATION
  Report Type: 
  Country: None (occurrence: None)
  Receive Date: 20051201
  Receipt Date: 20050719
  Transmission Date: 20060501
  Serious: No
  Sender: FDA-Public Use
  Company Number: 2005PV000490

PATIENT
  Age: 63 Year
  Sex: Female
  Weight: 115.2136 kg

DRUGS (7)
  1. BYETTA [Suspect]
     Indication: DIABETES MELLITUS NON-INSULIN-DEPENDENT
     Dosage: 5 MCG; BID; SC
     Route: 058
     Dates: start: 20050621
  2. ATENOLOL [Concomitant]
  3. GLIPIZIDE [Concomitant]
  4. METFORMIN [Concomitant]
  5. ACTOS [Concomitant]
  6. ZOCOR [Concomitant]
  7. ALEVE [Concomitant]

REACTIONS (3)
  - DIZZINESS [None]
  - INJECTION SITE BRUISING [None]
  - NAUSEA [None]
